FAERS Safety Report 4611443-5 (Version None)
Quarter: 2005Q1

REPORT INFORMATION
  Report Type: 
  Country: None (occurrence: None)
  Receive Date: 20050315
  Receipt Date: 20050315
  Transmission Date: 20050727
  Serious: Yes (Other)
  Sender: FDA-Public Use
  Company Number: None

PATIENT
  Age: 82 Year
  Sex: Male
  Weight: 88.5 kg

DRUGS (1)
  1. HYDROCHLOROTHIAZIDE [Suspect]

REACTIONS (3)
  - CHEST PAIN [None]
  - DIZZINESS [None]
  - HEADACHE [None]
